FAERS Safety Report 10153243 (Version 2)
Quarter: 2014Q2

REPORT INFORMATION
  Report Type: Spontaneous
  Country: BR (occurrence: BR)
  Receive Date: 20140505
  Receipt Date: 20140505
  Transmission Date: 20141212
  Serious: Yes (Hospitalization)
  Sender: FDA-Public Use
  Company Number: BR-009507513-1304BRA005521

PATIENT
  Age: 48 Year
  Sex: Male
  Weight: 74 kg

DRUGS (6)
  1. VICTRELIS [Suspect]
     Indication: HEPATITIS C
     Dosage: 800 MG, QAM
     Route: 048
     Dates: start: 201302
  2. VICTRELIS [Suspect]
     Dosage: 800 MG, QPM
     Route: 048
     Dates: start: 201302
  3. RIBAVIRIN [Concomitant]
     Indication: HEPATITIS C
     Dosage: 500 MG, QAM
     Route: 048
     Dates: start: 201302
  4. RIBAVIRIN [Concomitant]
     Dosage: 500 MG, QPM
     Route: 048
     Dates: start: 201302
  5. INTERFERON (UNSPECIFIED) [Concomitant]
     Indication: HEPATITIS C
     Dosage: UNK, QW
     Dates: start: 201302
  6. SPIRONOLACTONE [Concomitant]
     Indication: LOCAL SWELLING
     Dosage: ONE TABLET IN FASTING
     Dates: start: 201302

REACTIONS (7)
  - Hepatic cirrhosis [Not Recovered/Not Resolved]
  - Ageusia [Not Recovered/Not Resolved]
  - Abdominal discomfort [Not Recovered/Not Resolved]
  - Platelet count decreased [Not Recovered/Not Resolved]
  - Irritability [Not Recovered/Not Resolved]
  - Rash [Not Recovered/Not Resolved]
  - Off label use [Unknown]
